FAERS Safety Report 6714286-1 (Version None)
Quarter: 2010Q2

REPORT INFORMATION
  Report Type: 
  Country: None (occurrence: None)
  Receive Date: 20100506
  Receipt Date: 20100223
  Transmission Date: 20101027
  Serious: No
  Sender: FDA-Public Use
  Company Number: US-BAUSCH-2010BL001132

PATIENT
  Age: 44 Year
  Sex: Female

DRUGS (6)
  1. LOTEMAX [Suspect]
     Indication: ROSACEA
     Route: 047
     Dates: start: 20100112
  2. LOTEMAX [Suspect]
     Route: 047
     Dates: start: 20100112
  3. FINACEA /USA/ [Concomitant]
     Indication: ROSACEA
     Route: 061
  4. DOXYCYCLINE [Concomitant]
     Indication: ROSACEA
     Route: 048
  5. METHOTREXATE [Concomitant]
  6. RESTASIS [Concomitant]
     Route: 047

REACTIONS (1)
  - EYE DISCHARGE [None]
